FAERS Safety Report 9927137 (Version 1)
Quarter: 2014Q1

REPORT INFORMATION
  Report Type: Spontaneous
  Country: US (occurrence: US)
  Receive Date: 20140226
  Receipt Date: 20140226
  Transmission Date: 20141002
  Serious: No
  Sender: FDA-Public Use
  Company Number: US-AMGEN-USASP2014005124

PATIENT
  Age: 34 Year
  Sex: Female
  Weight: 90.7 kg

DRUGS (9)
  1. ENBREL [Suspect]
     Indication: PRODUCT USED FOR UNKNOWN INDICATION
     Dosage: 50 MG, 2 TIMES/WK
     Route: 058
  2. AMLODIPINE [Concomitant]
     Dosage: 2.5 MG, UNK
  3. LEVOTHYROXIN [Concomitant]
     Dosage: 125 MUG, UNK
  4. HYDROCHLOROTH [Concomitant]
     Dosage: 12.5 MG, UNK
  5. ABILIFY [Concomitant]
     Dosage: 15 MG, UNK
  6. WELLBUTRIN [Concomitant]
     Dosage: 100 MG, UNK, SR
  7. CLONAZEPAM [Concomitant]
     Dosage: 1 MG, UNK
  8. PRENAPLUS [Concomitant]
     Dosage: UNK
  9. BIOTIN [Concomitant]
     Dosage: 1 MG, UNK

REACTIONS (2)
  - Dry mouth [Unknown]
  - Injection site pain [Unknown]
